FAERS Safety Report 5394547-1 (Version None)
Quarter: 2007Q3

REPORT INFORMATION
  Report Type: 
  Country: None (occurrence: None)
  Receive Date: 20070723
  Receipt Date: 20070709
  Transmission Date: 20080115
  Serious: Yes (Death, Hospitalization)
  Sender: FDA-Public Use
  Company Number: US-ELI_LILLY_AND_COMPANY-US_000338391

PATIENT
  Age: 33 Year
  Sex: Male

DRUGS (5)
  1. PROZAC [Suspect]
     Dosage: 20 MG, DAILY (1/D)
     Route: 048
     Dates: start: 19900901, end: 19910101
  2. ZIDOVUDINE [Concomitant]
     Indication: HIV INFECTION
     Dosage: UNK, UNKNOWN
     Dates: start: 19900901, end: 19910101
  3. FLUCONAZOLE [Concomitant]
     Indication: HIV INFECTION
     Dosage: UNK, UNKNOWN
     Dates: start: 19900901, end: 19910101
  4. DAPSONE [Concomitant]
     Indication: HIV INFECTION
     Dosage: UNK, UNKNOWN
     Dates: start: 19900901, end: 19910101
  5. DILANTIN KAPSEAL [Concomitant]
     Dosage: UNK, UNKNOWN
     Dates: start: 19900901

REACTIONS (2)
  - PLATELET FUNCTION TEST ABNORMAL [None]
  - SUBDURAL HAEMATOMA [None]
